FAERS Safety Report 9224219 (Version 6)
Quarter: 2013Q4

REPORT INFORMATION
  Report Type: Spontaneous
  Country: US (occurrence: US)
  Receive Date: 20130411
  Receipt Date: 20131008
  Transmission Date: 20140711
  Serious: Yes (Life-Threatening, Disabling, Other)
  Sender: FDA-Public Use
  Company Number: US-009507513-1304USA004406

PATIENT
  Age: 55 Year
  Sex: Female
  Weight: 69.84 kg

DRUGS (29)
  1. EMEND [Suspect]
     Indication: PROPHYLAXIS OF NAUSEA AND VOMITING
     Dosage: 150 ML, UNK
     Route: 041
     Dates: start: 20130307
  2. EMEND [Interacting]
     Dosage: 150 MG, UNK
     Route: 041
     Dates: start: 20130321
  3. EMEND [Interacting]
     Dosage: 150 MG, UNK
     Route: 041
     Dates: start: 20130403
  4. CLOTRIMAZOLE [Interacting]
     Indication: ORAL CANDIDIASIS
     Dosage: 10 MG 5 TIMES A DAY
     Route: 048
     Dates: start: 20130401, end: 20130409
  5. DECADRON [Suspect]
     Dosage: 10 MG, UNK
     Route: 041
     Dates: start: 20130307, end: 20130307
  6. DECADRON [Suspect]
     Dosage: 10 MG, UNK
     Route: 041
     Dates: start: 20130321, end: 20130321
  7. DECADRON [Suspect]
     Dosage: 10 MG, UNK
     Route: 041
     Dates: start: 20130403, end: 20130403
  8. DECADRON [Suspect]
     Dosage: 4 MG, BID
     Route: 048
     Dates: start: 20130309, end: 20130310
  9. DECADRON [Suspect]
     Dosage: 4 MG, BID
     Route: 048
     Dates: start: 20130323, end: 20130324
  10. DECADRON [Suspect]
     Dosage: 4 MG, BID
     Route: 048
     Dates: start: 20130405, end: 20130406
  11. ALOXI [Concomitant]
     Dosage: UNK
     Route: 041
     Dates: start: 20130307
  12. ALOXI [Concomitant]
     Dosage: UNK
     Route: 041
     Dates: start: 20130321
  13. ALOXI [Concomitant]
     Dosage: UNK
     Route: 041
     Dates: start: 20130403
  14. RANITIDINE [Concomitant]
     Dosage: 300 MG, BID
  15. OMEPRAZOLE [Concomitant]
     Dosage: 40 MG, QID
     Route: 048
  16. CITRACAL [Concomitant]
  17. MAGNESIUM OXIDE [Concomitant]
     Dosage: 400 MG, UNK
     Route: 048
  18. LEVOGLUTAMIDE [Concomitant]
     Dosage: 500 MG, UNK
     Route: 048
  19. THIOCTIC ACID [Concomitant]
     Dosage: 300 MG, UNK
     Route: 048
  20. PYRIDOXINE [Concomitant]
     Dosage: 200 MG, UNK
     Route: 048
  21. Q-10 [Concomitant]
     Dosage: 400 MG, UNK
     Route: 048
  22. ACETAMINOPHEN [Concomitant]
     Dosage: 3000 MG, PRN
     Route: 048
  23. LORATADINE [Concomitant]
     Indication: BONE PAIN
     Dosage: 10 MG, UNK
     Route: 048
  24. COLACE [Concomitant]
     Dosage: 100 MG, UNK
     Route: 048
  25. MIRALAX [Concomitant]
     Dosage: 1 UNK, UNK
     Route: 048
  26. ADRIAMYCIN [Concomitant]
     Dosage: UNK
  27. CYTOXAN [Concomitant]
     Dosage: UNK
     Dates: start: 20130307
  28. PACLITAXEL [Concomitant]
  29. NEULASTA [Concomitant]
     Dosage: UNK
     Dates: start: 20130309

REACTIONS (11)
  - Renal salt-wasting syndrome [Recovering/Resolving]
  - Polyuria [Not Recovered/Not Resolved]
  - Polyuria [Recovered/Resolved]
  - Polyuria [Recovered/Resolved]
  - Hypersensitivity [Not Recovered/Not Resolved]
  - Orthostatic hypotension [Unknown]
  - Central venous pressure decreased [Unknown]
  - Overdose [Unknown]
  - Drug interaction [Unknown]
  - Tachycardia [Not Recovered/Not Resolved]
  - Weight decreased [Unknown]
